FAERS Safety Report 16101392 (Version 2)
Quarter: 2019Q4

REPORT INFORMATION
  Report Type: Spontaneous
  Country: PT (occurrence: PT)
  Receive Date: 20190321
  Receipt Date: 20191023
  Transmission Date: 20200122
  Serious: Yes (Other)
  Sender: FDA-Public Use
  Company Number: PT-PFIZER INC-2019119484

PATIENT
  Age: 56 Year
  Sex: Female
  Weight: 80.2 kg

DRUGS (3)
  1. AMLODIPINA SANDOZ [Concomitant]
     Dosage: 1 DF, 1X/DAY
     Route: 065
  2. PIPERACILLIN/TAZOBACTAM [Suspect]
     Active Substance: PIPERACILLIN SODIUM\TAZOBACTAM SODIUM
     Indication: SKIN ULCER
     Dosage: 4.5 G, 4X/DAY (6/6H)
     Route: 042
     Dates: start: 20190301, end: 20190301
  3. FLUCONAZOL KABI [Concomitant]
     Dosage: 1 DF, 1X/DAY
     Route: 065

REACTIONS (2)
  - Pruritus [Recovering/Resolving]
  - Papule [Recovering/Resolving]

NARRATIVE: CASE EVENT DATE: 20190301
